FAERS Safety Report 18054019 (Version 1)
Quarter: 2020Q3

REPORT INFORMATION
  Report Type: Spontaneous
  Country: PR (occurrence: PR)
  Receive Date: 20200722
  Receipt Date: 20200722
  Transmission Date: 20201103
  Serious: No
  Sender: FDA-Public Use
  Company Number: PR-PFIZER INC-2020277746

PATIENT
  Sex: Male

DRUGS (1)
  1. CHANTIX [Suspect]
     Active Substance: VARENICLINE TARTRATE
     Dosage: UNK

REACTIONS (3)
  - Abdominal discomfort [Unknown]
  - Nausea [Unknown]
  - Dyspepsia [Unknown]
